FAERS Safety Report 5952969-1 (Version None)
Quarter: 2008Q4

REPORT INFORMATION
  Report Type: 
  Country: None (occurrence: None)
  Receive Date: 20081114
  Receipt Date: 20081110
  Transmission Date: 20090506
  Serious: Yes (Hospitalization)
  Sender: FDA-Public Use
  Company Number: IT-BAYER-200830245GPV

PATIENT
  Age: 74 Year
  Sex: Male

DRUGS (6)
  1. LEVITRA [Suspect]
     Indication: ERECTILE DYSFUNCTION
     Dosage: TOTAL DAILY DOSE: 20 MG
     Route: 048
     Dates: start: 20080529, end: 20080529
  2. XERISTAR (DULOXETINE) [Concomitant]
     Indication: DEPRESSION
     Dosage: TOTAL DAILY DOSE: 60 MG
     Route: 048
  3. AXAGON (ESOMEPRAZOLE) [Concomitant]
     Indication: OESOPHAGITIS
     Dosage: TOTAL DAILY DOSE: 40 MG
     Route: 048
  4. XATRAL (ALFUZOSIN) [Concomitant]
     Indication: BENIGN PROSTATIC HYPERPLASIA
     Dosage: TOTAL DAILY DOSE: 10 MG
     Route: 048
  5. SEREVENT DISKUS (SALMETEROL) [Concomitant]
     Indication: BRONCHOPNEUMOPATHY
     Dosage: TOTAL DAILY DOSE: 50 ?G
     Route: 055
  6. SPIRIVA [Concomitant]
     Indication: BRONCHOPNEUMOPATHY
     Dosage: TOTAL DAILY DOSE: 18 ?G
     Route: 055

REACTIONS (4)
  - HAEMATEMESIS [None]
  - LYMPHOPENIA [None]
  - MELAENA [None]
  - THROMBOCYTOPENIA [None]
